FAERS Safety Report 10765009 (Version 7)
Quarter: 2017Q1

REPORT INFORMATION
  Report Type: Spontaneous
  Country: US (occurrence: US)
  Receive Date: 20150205
  Receipt Date: 20170227
  Transmission Date: 20170428
  Serious: Yes (Other)
  Sender: FDA-Public Use
  Company Number: US-PFIZER INC-2015016184

PATIENT
  Age: 51 Year
  Sex: Male
  Weight: 77 kg

DRUGS (3)
  1. DULOXETINE. [Concomitant]
     Active Substance: DULOXETINE
     Dosage: UNK
  2. SUTENT [Suspect]
     Active Substance: SUNITINIB MALATE
     Indication: SMALL INTESTINE CARCINOMA
     Dosage: 25 MG, CYCLIC (DAILY FOR 28 DAYS ON AND 14 DAYS OFF)(1 P.O. Q. DAY EVERY 28 DAYS THEN OFF 14)
     Route: 048
     Dates: start: 20110223
  3. MIRTAZAPINE. [Concomitant]
     Active Substance: MIRTAZAPINE
     Dosage: UNK

REACTIONS (5)
  - Diarrhoea [Unknown]
  - Flatulence [Unknown]
  - Abdominal discomfort [Unknown]
  - Nephrotic syndrome [Unknown]
  - Abdominal pain [Unknown]
